FAERS Safety Report 9644210 (Version 1)
Quarter: 2013Q4

REPORT INFORMATION
  Report Type: Spontaneous
  Country: US (occurrence: US)
  Receive Date: 20131024
  Receipt Date: 20131024
  Transmission Date: 20140711
  Serious: No
  Sender: FDA-Public Use
  Company Number: US-009507513-1309USA011110

PATIENT
  Age: 19 Year
  Sex: Female
  Weight: 63.95 kg

DRUGS (3)
  1. NEXPLANON [Suspect]
     Indication: CONTRACEPTION
     Dosage: UNK
     Dates: start: 20130920
  2. ZYRTEC [Concomitant]
  3. LIDOCAINE [Concomitant]

REACTIONS (3)
  - Contusion [Recovering/Resolving]
  - Swelling [Recovering/Resolving]
  - Medical device complication [Recovered/Resolved]
